FAERS Safety Report 5451383-5 (Version None)
Quarter: 2007Q3

REPORT INFORMATION
  Report Type: 
  Country: None (occurrence: None)
  Receive Date: 20070911
  Receipt Date: 20070911
  Transmission Date: 20080115
  Serious: Yes (Hospitalization)
  Sender: FDA-Public Use
  Company Number: None

PATIENT
  Age: 45 Year
  Sex: Female
  Weight: 78.9259 kg

DRUGS (2)
  1. YAZ [Suspect]
     Indication: MENSTRUAL DISORDER
     Dosage: 1 TABLET ONCE DAILY PO
     Route: 048
  2. YAZ [Suspect]
     Indication: UTERINE LEIOMYOMA
     Dosage: 1 TABLET ONCE DAILY PO
     Route: 048

REACTIONS (2)
  - ABDOMINAL PAIN [None]
  - PORTAL VEIN THROMBOSIS [None]
